FAERS Safety Report 8299797 (Version 3)
Quarter: 2012Q4

REPORT INFORMATION
  Report Type: 
  Country: US (occurrence: US)
  Receive Date: 20111219
  Receipt Date: 20121130
  Transmission Date: 20130627
  Serious: Yes (Other)
  Sender: FDA-Public Use
  Company Number: US-ROCHE-1022833

PATIENT
  Age: 46 None
  Sex: Female
  Weight: 61.29 kg

DRUGS (4)
  1. ACCUTANE [Suspect]
     Indication: ACNE
     Route: 065
     Dates: start: 20011218
  2. INSULIN [Concomitant]
  3. WELLBUTRIN [Concomitant]
  4. ORTHO-PREFEST [Concomitant]

REACTIONS (9)
  - Colitis ulcerative [Unknown]
  - Crohn^s disease [Unknown]
  - Irritable bowel syndrome [Unknown]
  - Impaired gastric emptying [Unknown]
  - Emotional distress [Unknown]
  - Pruritus [Unknown]
  - Cheilitis [Unknown]
  - Dry mouth [Unknown]
  - Headache [Unknown]
